FAERS Safety Report 5456913-5 (Version None)
Quarter: 2007Q3

REPORT INFORMATION
  Report Type: 
  Country: None (occurrence: None)
  Receive Date: 20070918
  Receipt Date: 20070531
  Transmission Date: 20080115
  Serious: Yes (Hospitalization, Other)
  Sender: FDA-Public Use
  Company Number: US-ASTRAZENECA-2006UW27447

PATIENT
  Age: 16477 Day
  Sex: Female
  Weight: 100.5 kg

DRUGS (6)
  1. SEROQUEL [Suspect]
     Dosage: 25 MG AND 100 MG
     Route: 048
     Dates: start: 20010824, end: 20050530
  2. ZYPREXA [Concomitant]
  3. RISPERDAL [Concomitant]
  4. ABILIFY [Concomitant]
  5. HALOPERIDOL [Concomitant]
  6. THORAZINE [Concomitant]

REACTIONS (2)
  - DIABETES MELLITUS [None]
  - DIABETIC KETOACIDOSIS [None]
